FAERS Safety Report 4596595-8 (Version None)
Quarter: 2005Q1

REPORT INFORMATION
  Report Type: 
  Country: None (occurrence: None)
  Receive Date: 20050228
  Receipt Date: 20050209
  Transmission Date: 20050727
  Serious: Yes (Hospitalization)
  Sender: FDA-Public Use
  Company Number: L05-USA-00512-01

PATIENT
  Age: 72 Year
  Sex: Female

DRUGS (12)
  1. MEMANTINE HCL [Suspect]
     Dosage: 15 MG QD PO
     Route: 048
     Dates: start: 20040122, end: 20040124
  2. MEMANTINE HCL [Suspect]
     Dates: start: 20040101
  3. MEMANTINE HCL [Suspect]
     Dosage: 5 MG QD PO
     Route: 048
     Dates: start: 20040101, end: 20040107
  4. MEMANTINE HCL [Suspect]
     Dosage: 5 MG BID PO
     Route: 048
     Dates: start: 20040108, end: 20040121
  5. LATANOPROST [Concomitant]
  6. AMLODIPINE BESYLATE (AMLODIPINE BESILATE) [Concomitant]
  7. VITAMIN B COMPLEX CAP [Concomitant]
  8. VITAMIN E [Concomitant]
  9. ASPIRIN [Concomitant]
  10. SERTRALINE HYDROCHLORIDE [Concomitant]
  11. RIVASTIGMINE TARTRATE [Concomitant]
  12. OLANZAPINE [Concomitant]

REACTIONS (13)
  - CEREBRAL ATROPHY [None]
  - CEREBRAL ISCHAEMIA [None]
  - CONFUSIONAL STATE [None]
  - CREATININE RENAL CLEARANCE DECREASED [None]
  - DEPRESSED LEVEL OF CONSCIOUSNESS [None]
  - ELECTROENCEPHALOGRAM ABNORMAL [None]
  - FALL [None]
  - GRAND MAL CONVULSION [None]
  - HEADACHE [None]
  - LOSS OF CONSCIOUSNESS [None]
  - MUSCLE RIGIDITY [None]
  - SCREAMING [None]
  - TREMOR [None]
